FAERS Safety Report 24154243 (Version 1)
Quarter: 2024Q3

REPORT INFORMATION
  Report Type: Spontaneous
  Country: US (occurrence: US)
  Receive Date: 20240730
  Receipt Date: 20240730
  Transmission Date: 20241016
  Serious: No
  Sender: SANOFI AVENTIS
  Company Number: US-SA-SAC20240724000800

PATIENT
  Sex: Female

DRUGS (1)
  1. DUPIXENT [Suspect]
     Active Substance: DUPILUMAB
     Indication: Dermatitis atopic
     Dosage: DOSE- 300MG FREQUENCY- EVERY 14 DAYS
     Route: 058
     Dates: start: 202405

REACTIONS (4)
  - Eye discharge [Recovering/Resolving]
  - Condition aggravated [Recovering/Resolving]
  - Conjunctivitis allergic [Recovering/Resolving]
  - Blepharitis [Unknown]

NARRATIVE: CASE EVENT DATE: 20240101
